FAERS Safety Report 6262373-7 (Version None)
Quarter: 2009Q3

REPORT INFORMATION
  Report Type: 
  Country: None (occurrence: None)
  Receive Date: 20090709
  Receipt Date: 20090706
  Transmission Date: 20100115
  Serious: Yes (Other)
  Sender: FDA-Public Use
  Company Number: PHEH2009US05587

PATIENT
  Sex: Female

DRUGS (9)
  1. STALEVO 100 [Suspect]
     Indication: PARKINSON'S DISEASE
     Dosage: 150 MG, UNK
  2. STALEVO 100 [Suspect]
     Dosage: 200 MG, UP TO 8 TABLETS PER DAY
     Route: 048
     Dates: start: 20061001
  3. SINEMET [Concomitant]
     Indication: PARKINSON'S DISEASE
     Dosage: 25/100MG, FOUR TABLETS QD
     Route: 048
     Dates: start: 20070101
  4. SINEMET CR [Concomitant]
     Indication: PARKINSON'S DISEASE
     Dosage: 25/100 MG, UP TO 5 TABLETS DAILY
     Route: 048
     Dates: start: 20061201
  5. ZOLOFT [Concomitant]
     Indication: DEPRESSION
     Dosage: 200 MG, QD
     Route: 048
     Dates: start: 20060901
  6. SYNTHROID [Concomitant]
     Indication: HYPOTHYROIDISM
     Dosage: 0.75 MG, DAILY
     Route: 048
     Dates: start: 20061201
  7. ALLEGRA [Concomitant]
     Dosage: UNK, UNK
  8. ESTRADIOL [Concomitant]
     Dosage: UNK, UNK
  9. KLONOPIN [Concomitant]
     Dosage: UNK, UNK

REACTIONS (6)
  - ABASIA [None]
  - ASTHENIA [None]
  - BEDRIDDEN [None]
  - CHROMATURIA [None]
  - DRUG INEFFECTIVE [None]
  - MALAISE [None]
